FAERS Safety Report 6675379-0 (Version None)
Quarter: 2010Q2

REPORT INFORMATION
  Report Type: 
  Country: None (occurrence: None)
  Receive Date: 20100409
  Receipt Date: 20100312
  Transmission Date: 20101027
  Serious: No
  Sender: FDA-Public Use
  Company Number: A0849996A

PATIENT
  Age: 49 Year
  Sex: Female

DRUGS (6)
  1. TYKERB [Suspect]
     Indication: BREAST CANCER
     Dosage: 5TAB PER DAY
     Route: 048
     Dates: start: 20100121
  2. XELODA [Concomitant]
  3. SIMVASTATIN [Concomitant]
  4. NEXIUM [Concomitant]
  5. LORATADINE [Concomitant]
  6. BENADRYL [Concomitant]

REACTIONS (2)
  - DEHYDRATION [None]
  - DERMATITIS ACNEIFORM [None]
